FAERS Safety Report 15367082 (Version 1)
Quarter: 2018Q3

REPORT INFORMATION
  Report Type: Spontaneous
  Country: US (occurrence: US)
  Receive Date: 20180903
  Receipt Date: 20180903
  Transmission Date: 20181010
  Serious: Yes (Life-Threatening, Hospitalization)
  Sender: FDA-Public Use
  Company Number: None

PATIENT
  Age: 53 Year
  Sex: Female
  Weight: 48.15 kg

DRUGS (3)
  1. AMOXILLIN 500 MG. [Suspect]
     Active Substance: AMOXICILLIN
     Indication: GINGIVAL SWELLING
     Dosage: ?          QUANTITY:1 CAPSULE(S);?
     Route: 048
     Dates: start: 20180826, end: 20180826
  2. KRILL OIL [Concomitant]
     Active Substance: DIETARY SUPPLEMENT
  3. CALCIUM + VITAMIN D [Concomitant]
     Active Substance: CALCIUM\VITAMIN D

REACTIONS (11)
  - Pallor [None]
  - Asthenia [None]
  - Diarrhoea [None]
  - Abdominal pain upper [None]
  - Vomiting [None]
  - Pulse abnormal [None]
  - Vision blurred [None]
  - Rash [None]
  - Blood pressure decreased [None]
  - Nausea [None]
  - Dizziness [None]

NARRATIVE: CASE EVENT DATE: 20180826
